FAERS Safety Report 7788288-0 (Version None)
Quarter: 2011Q3

REPORT INFORMATION
  Report Type: 
  Country: None (occurrence: None)
  Receive Date: 20110927
  Receipt Date: 20110913
  Transmission Date: 20111222
  Serious: Yes (Death, Hospitalization, Other)
  Sender: FDA-Public Use
  Company Number: AUR-APL-2011-05083

PATIENT
  Age: 51 Year
  Sex: Female

DRUGS (4)
  1. ATIVAN [Suspect]
     Indication: PRODUCT USED FOR UNKNOWN INDICATION
  2. CARISOPRODOL [Suspect]
     Indication: PRODUCT USED FOR UNKNOWN INDICATION
  3. MELATONIN (MELATONIN) [Suspect]
     Indication: PRODUCT USED FOR UNKNOWN INDICATION
  4. CLONAZEPAM [Suspect]
     Indication: PRODUCT USED FOR UNKNOWN INDICATION

REACTIONS (9)
  - URINARY BLADDER RUPTURE [None]
  - TACHYPNOEA [None]
  - UNRESPONSIVE TO STIMULI [None]
  - PNEUMONIA ASPIRATION [None]
  - SOFT TISSUE HAEMORRHAGE [None]
  - TOXICITY TO VARIOUS AGENTS [None]
  - HYPERHIDROSIS [None]
  - PAIN [None]
  - GENERAL PHYSICAL HEALTH DETERIORATION [None]
